FAERS Safety Report 5585338-7 (Version None)
Quarter: 2008Q1

REPORT INFORMATION
  Report Type: 
  Country: None (occurrence: None)
  Receive Date: 20080104
  Receipt Date: 20080104
  Transmission Date: 20080703
  Serious: Yes (Hospitalization)
  Sender: FDA-Public Use
  Company Number: None

PATIENT
  Sex: Male
  Weight: 94 kg

DRUGS (1)
  1. DILTIAZEM HCL [Suspect]
     Indication: HYPERTENSION
     Dosage: 180MG   EVERY DAY  PO
     Route: 048
     Dates: start: 20060518, end: 20080102

REACTIONS (2)
  - ABDOMINAL PAIN [None]
  - CONSTIPATION [None]
